FAERS Safety Report 4915172-X (Version None)
Quarter: 2006Q1

REPORT INFORMATION
  Report Type: 
  Country: None (occurrence: None)
  Receive Date: 20060216
  Receipt Date: 20060216
  Transmission Date: 20060701
  Serious: Yes (Hospitalization)
  Sender: FDA-Public Use
  Company Number: None

PATIENT
  Sex: Female
  Weight: 81.6475 kg

DRUGS (3)
  1. LEVAQUIN [Suspect]
     Indication: SYSTEMIC ANTIBACTERIAL THERAPY
     Dosage: UNKNOWN, PO
     Route: 048
     Dates: start: 20051007
  2. VICODIN [Concomitant]
  3. PROZAC [Concomitant]

REACTIONS (2)
  - HEART RATE INCREASED [None]
  - URTICARIA [None]
